FAERS Safety Report 13094987 (Version 2)
Quarter: 2017Q1

REPORT INFORMATION
  Report Type: Spontaneous
  Country: JP (occurrence: JP)
  Receive Date: 20170106
  Receipt Date: 20170203
  Transmission Date: 20170428
  Serious: Yes (Hospitalization)
  Sender: FDA-Public Use
  Company Number: JP-UNITED THERAPEUTICS-UNT-2016-002193

PATIENT
  Age: 45 Year
  Sex: Male
  Weight: 72 kg

DRUGS (1)
  1. REMODULIN [Suspect]
     Active Substance: TREPROSTINIL
     Indication: PRODUCT USED FOR UNKNOWN INDICATION
     Dosage: UNK
     Route: 058
     Dates: start: 20160204

REACTIONS (7)
  - Oedema [Recovered/Resolved]
  - Infusion site pain [Recovering/Resolving]
  - Dyspnoea [Recovered/Resolved]
  - Cardiac failure [Recovering/Resolving]
  - Dermatitis contact [Unknown]
  - Pulmonary arterial pressure increased [Unknown]
  - Infusion site erythema [Not Recovered/Not Resolved]

NARRATIVE: CASE EVENT DATE: 201602
